FAERS Safety Report 23341447 (Version 1)
Quarter: 2023Q4

REPORT INFORMATION
  Report Type: Spontaneous
  Country: US (occurrence: US)
  Receive Date: 20231227
  Receipt Date: 20231227
  Transmission Date: 20240109
  Serious: Yes (Other)
  Sender: FDA-Public Use
  Company Number: US-CIPLA LTD.-2023US08004

PATIENT

DRUGS (1)
  1. ATORVASTATIN [Suspect]
     Active Substance: ATORVASTATIN
     Indication: Myocardial infarction
     Dosage: UNK, 3 YEARS PRIOR
     Route: 065

REACTIONS (2)
  - Weight decreased [Recovering/Resolving]
  - Immune-mediated myositis [Recovering/Resolving]
